FAERS Safety Report 14339984 (Version 3)
Quarter: 2018Q2

REPORT INFORMATION
  Report Type: Spontaneous
  Country: US (occurrence: US)
  Receive Date: 20171231
  Receipt Date: 20180608
  Transmission Date: 20180711
  Serious: No
  Sender: FDA-Public Use
  Company Number: US-TEVA-2017-US-839208

PATIENT
  Age: 37 Year
  Sex: Male

DRUGS (6)
  1. FENTORA [Suspect]
     Active Substance: FENTANYL CITRATE
     Indication: CROHN^S DISEASE
  2. FENTORA [Suspect]
     Active Substance: FENTANYL CITRATE
     Indication: SELECTIVE IGA IMMUNODEFICIENCY
     Route: 065
     Dates: start: 201604, end: 201712
  3. FENTORA [Suspect]
     Active Substance: FENTANYL CITRATE
     Indication: BLOOD IMMUNOGLOBULIN G
  4. FENTORA [Suspect]
     Active Substance: FENTANYL CITRATE
     Indication: RHEUMATOID ARTHRITIS
  5. FENTANYL. [Suspect]
     Active Substance: FENTANYL
  6. FENTORA [Suspect]
     Active Substance: FENTANYL CITRATE
     Indication: BRUCELLOSIS

REACTIONS (7)
  - Malaise [Not Recovered/Not Resolved]
  - Product use in unapproved indication [Unknown]
  - Drug titration error [Not Recovered/Not Resolved]
  - Adjustment disorder [Not Recovered/Not Resolved]
  - Pain [Not Recovered/Not Resolved]
  - Withdrawal syndrome [Not Recovered/Not Resolved]
  - Movement disorder [Not Recovered/Not Resolved]

NARRATIVE: CASE EVENT DATE: 201604
